FAERS Safety Report 9752640 (Version 2)
Quarter: 2014Q1

REPORT INFORMATION
  Report Type: Spontaneous
  Country: US (occurrence: US)
  Receive Date: 20131213
  Receipt Date: 20140226
  Transmission Date: 20141002
  Serious: Yes (Hospitalization, Other)
  Sender: FDA-Public Use
  Company Number: US-NOVOPROD-395026

PATIENT
  Age: 58 Year
  Sex: Male
  Weight: 104.31 kg

DRUGS (5)
  1. VICTOZA [Suspect]
     Indication: TYPE 2 DIABETES MELLITUS
     Dosage: UNK
     Route: 058
     Dates: start: 20111209, end: 201211
  2. METFORMIN [Concomitant]
     Indication: TYPE 2 DIABETES MELLITUS
  3. AMARYL [Concomitant]
     Indication: TYPE 2 DIABETES MELLITUS
  4. PRAVACHOL [Concomitant]
     Indication: HYPERLIPIDAEMIA
  5. TRILIPIX [Concomitant]
     Indication: HYPERLIPIDAEMIA

REACTIONS (2)
  - Intraductal papillary mucinous neoplasm [Recovered/Resolved]
  - Pancreatitis [Recovered/Resolved]
